FAERS Safety Report 5270428-9 (Version None)
Quarter: 2007Q1

REPORT INFORMATION
  Report Type: 
  Country: None (occurrence: None)
  Receive Date: 20070320
  Receipt Date: 20070308
  Transmission Date: 20070707
  Serious: Yes (Hospitalization, Disabling, Other)
  Sender: FDA-Public Use
  Company Number: BR-PFIZER INC-2007019071

PATIENT
  Sex: Female

DRUGS (7)
  1. DIABINESE [Suspect]
     Indication: DIABETES MELLITUS
     Route: 048
     Dates: start: 19960101, end: 20041130
  2. NORVASC [Suspect]
     Route: 048
  3. OLMETEC [Suspect]
     Route: 048
  4. CADUET [Suspect]
     Route: 048
  5. ALDACTONE [Suspect]
     Route: 048
  6. CORISTINA D [Suspect]
     Route: 048
  7. INSULIN [Suspect]
     Route: 058

REACTIONS (7)
  - ARTERIAL OCCLUSIVE DISEASE [None]
  - BLOOD GLUCOSE INCREASED [None]
  - DYSPNOEA [None]
  - MALAISE [None]
  - MYOCARDIAL INFARCTION [None]
  - OEDEMA [None]
  - PULMONARY OEDEMA [None]
